FAERS Safety Report 15307559 (Version 1)
Quarter: 2018Q3

REPORT INFORMATION
  Report Type: Spontaneous
  Country: US (occurrence: US)
  Receive Date: 20180822
  Receipt Date: 20180822
  Transmission Date: 20181010
  Serious: No
  Sender: FDA-Public Use
  Company Number: US-ELI_LILLY_AND_COMPANY-US201807013546

PATIENT
  Sex: Male

DRUGS (3)
  1. CYRAMZA [Suspect]
     Active Substance: RAMUCIRUMAB
     Indication: RECTAL CANCER
     Dosage: 771 MG, CYCLICAL
     Route: 042
     Dates: start: 20180619
  2. CYRAMZA [Suspect]
     Active Substance: RAMUCIRUMAB
     Indication: RECTAL CANCER
     Dosage: 771 MG, CYCLICAL
     Route: 042
     Dates: start: 20180619
  3. CYRAMZA [Suspect]
     Active Substance: RAMUCIRUMAB
     Indication: RECTAL CANCER
     Dosage: 771 MG, CYCLICAL
     Route: 042
     Dates: start: 20180619, end: 20180802

REACTIONS (1)
  - Malaise [Unknown]
